FAERS Safety Report 5834062-1 (Version None)
Quarter: 2008Q3

REPORT INFORMATION
  Report Type: 
  Country: None (occurrence: None)
  Receive Date: 20080805
  Receipt Date: 20080717
  Transmission Date: 20090109
  Serious: Yes (Hospitalization)
  Sender: FDA-Public Use
  Company Number: AU-EISAI MEDIAL RESEARCH-E3810-01925-SPO-AU

PATIENT
  Sex: Male

DRUGS (3)
  1. RABEPRAZOLE SODIUM [Suspect]
     Route: 048
     Dates: start: 20070901
  2. XALATAN [Concomitant]
  3. GLUCOSAMINE [Concomitant]

REACTIONS (2)
  - ANGINA PECTORIS [None]
  - EXPIRED DRUG ADMINISTERED [None]
